FAERS Safety Report 4430075-5 (Version None)
Quarter: 2004Q3

REPORT INFORMATION
  Report Type: 
  Country: None (occurrence: None)
  Receive Date: 20040817
  Receipt Date: 20040811
  Transmission Date: 20050211
  Serious: Yes (Other)
  Sender: FDA-Public Use
  Company Number: 04-297-0092

PATIENT
  Age: 28 Year
  Sex: Female
  Weight: 72.5755 kg

DRUGS (1)
  1. DOXORUBICIN 200 MG SOLN, BEN VENUE LABS [Suspect]
     Indication: ACCIDENTAL EXPOSURE
     Dosage: TOPICAL-SPILL TO SKIN
     Route: 061
     Dates: start: 20040803

REACTIONS (4)
  - ACCIDENTAL EXPOSURE [None]
  - CHLOASMA [None]
  - SKIN DESQUAMATION [None]
  - SKIN DISCOLOURATION [None]
